FAERS Safety Report 12503908 (Version 3)
Quarter: 2016Q3

REPORT INFORMATION
  Report Type: Spontaneous
  Country: US (occurrence: US)
  Receive Date: 20160628
  Receipt Date: 20160720
  Transmission Date: 20161109
  Serious: Yes (Hospitalization, Other)
  Sender: FDA-Public Use
  Company Number: US-PFIZER INC-2016309444

PATIENT
  Age: 81 Year
  Sex: Female
  Weight: 67 kg

DRUGS (5)
  1. FLECTOR [Suspect]
     Active Substance: DICLOFENAC EPOLAMINE
     Indication: RHEUMATOID ARTHRITIS
     Dosage: UNK, 2X/DAY (30^S 1.3% TWICE A DAY)
     Dates: start: 2005
  2. ULTRAM [Concomitant]
     Active Substance: TRAMADOL HYDROCHLORIDE
     Dosage: UNK
  3. COUMADIN [Concomitant]
     Active Substance: WARFARIN SODIUM
     Dosage: UNK
  4. FLECTOR [Suspect]
     Active Substance: DICLOFENAC EPOLAMINE
     Indication: NEUROPATHY PERIPHERAL
     Dosage: 2X/DAY; 1.3%, CAN USE EVERY 12 HOURS, PATCH, APPLIED TO BACK OF SPINE
     Route: 062
     Dates: start: 201508
  5. FLECTOR [Suspect]
     Active Substance: DICLOFENAC EPOLAMINE
     Indication: PAIN

REACTIONS (5)
  - Product use issue [Not Recovered/Not Resolved]
  - Femur fracture [Not Recovered/Not Resolved]
  - Fall [Not Recovered/Not Resolved]
  - Joint injury [Not Recovered/Not Resolved]
  - Expired product administered [Not Recovered/Not Resolved]

NARRATIVE: CASE EVENT DATE: 201508
